FAERS Safety Report 9007251 (Version 1)
Quarter: 2013Q1

REPORT INFORMATION
  Report Type: Report from Study
  Country: AU (occurrence: AU)
  Receive Date: 20130110
  Receipt Date: 20130110
  Transmission Date: 20140127
  Serious: Yes (Other)
  Sender: FDA-Public Use
  Company Number: AU-ROCHE-1177465

PATIENT
  Sex: Male

DRUGS (6)
  1. TOCILIZUMAB [Suspect]
     Indication: RHEUMATOID ARTHRITIS
     Route: 042
  2. INDOPRIL [Concomitant]
     Route: 048
  3. NEXIUM [Concomitant]
     Route: 048
  4. LIPITOR [Concomitant]
     Route: 048
  5. ENDONE [Concomitant]
     Route: 065
  6. ENDONE [Concomitant]
     Route: 065

REACTIONS (1)
  - Emphysema [Not Recovered/Not Resolved]
